FAERS Safety Report 12707705 (Version 1)
Quarter: 2016Q3

REPORT INFORMATION
  Report Type: Spontaneous
  Country: US (occurrence: US)
  Receive Date: 20160901
  Receipt Date: 20160901
  Transmission Date: 20161109
  Serious: Yes (Other)
  Sender: FDA-Public Use
  Company Number: US-BAYER-2016-164546

PATIENT
  Age: 38 Year
  Sex: Female

DRUGS (1)
  1. BETASERON [Suspect]
     Active Substance: INTERFERON BETA-1B
     Indication: MULTIPLE SCLEROSIS
     Dosage: 0.125 MG, UNK
     Route: 058
     Dates: start: 201605

REACTIONS (5)
  - Depression [None]
  - Gait disturbance [None]
  - Myalgia [None]
  - Fatigue [None]
  - Decreased interest [None]

NARRATIVE: CASE EVENT DATE: 201605
